FAERS Safety Report 23030438 (Version 2)
Quarter: 2023Q4

REPORT INFORMATION
  Report Type: Report from Study
  Country: MX (occurrence: MX)
  Receive Date: 20231005
  Receipt Date: 20231225
  Transmission Date: 20240109
  Serious: Yes (Hospitalization, Other)
  Sender: FDA-Public Use
  Company Number: MX-002147023-NVSC2023MX211442

PATIENT
  Age: 59 Year
  Sex: Female

DRUGS (1)
  1. COSENTYX [Suspect]
     Active Substance: SECUKINUMAB
     Indication: Ankylosing spondylitis
     Dosage: 1 DOSAGE FORM, QMO
     Route: 058
     Dates: start: 202002

REACTIONS (13)
  - Urosepsis [Unknown]
  - Swelling [Unknown]
  - Pyrexia [Unknown]
  - Tremor [Unknown]
  - Pneumonia [Unknown]
  - Benign joint neoplasm [Unknown]
  - Cartilage injury [Unknown]
  - COVID-19 [Recovered/Resolved]
  - Influenza [Unknown]
  - Fatigue [Unknown]
  - Decreased immune responsiveness [Recovered/Resolved]
  - General physical health deterioration [Unknown]
  - HLA-B*27 positive [Unknown]

NARRATIVE: CASE EVENT DATE: 20201203
